FAERS Safety Report 8550597-5 (Version None)
Quarter: 2012Q3

REPORT INFORMATION
  Report Type: 
  Country: None (occurrence: None)
  Receive Date: 20120730
  Receipt Date: 20110624
  Transmission Date: 20120928
  Serious: No
  Sender: FDA-Public Use
  Company Number: US-ALLERGAN-1108672US

PATIENT
  Age: 56 Year
  Sex: Female

DRUGS (1)
  1. LATISSE [Suspect]
     Indication: GROWTH OF EYELASHES
     Dosage: UNK
     Dates: start: 20110501

REACTIONS (3)
  - EYELIDS PRURITUS [None]
  - ERYTHEMA OF EYELID [None]
  - EYE PRURITUS [None]
